FAERS Safety Report 25582929 (Version 2)
Quarter: 2025Q3

REPORT INFORMATION
  Report Type: Report from Study
  Country: GB (occurrence: GB)
  Receive Date: 20250720
  Receipt Date: 20250728
  Transmission Date: 20251021
  Serious: Yes (Hospitalization)
  Sender: ABBVIE
  Company Number: GB-ABBVIE-6372671

PATIENT
  Sex: Female

DRUGS (2)
  1. SKYRIZI [Suspect]
     Active Substance: RISANKIZUMAB-RZAA
     Indication: Colitis ulcerative
     Dosage: FORM STRENGTH: 360MG/2.4ML, DOSE FORM: SOLUTION FOR INJECTION IN CARTRIDGE
     Route: 058
  2. SKYRIZI [Suspect]
     Active Substance: RISANKIZUMAB-RZAA
     Dosage: FORM STRENGTH: 360MG/2.4ML, DOSE FORM: SOLUTION FOR INJECTION IN CARTRIDGE
     Route: 058

REACTIONS (3)
  - Diarrhoea [Unknown]
  - Colitis ulcerative [Unknown]
  - Off label use [Unknown]
